FAERS Safety Report 19926676 (Version 1)
Quarter: 2021Q4

REPORT INFORMATION
  Report Type: Spontaneous
  Country: US (occurrence: US)
  Receive Date: 20211007
  Receipt Date: 20211007
  Transmission Date: 20220303
  Serious: Yes (Disabling)
  Sender: FDA-Public Use
  Company Number: US-ROCHE-2903900

PATIENT
  Sex: Female

DRUGS (1)
  1. ESBRIET [Suspect]
     Active Substance: PIRFENIDONE
     Indication: Idiopathic pulmonary fibrosis
     Dosage: TAKE 1 CAPSULE TID FOR 7 DAYS, THEN 2 CAPSULES TID FOR 7 DAYS AND 3 CAPSULES TID THEREAFTER.?ONGOING
     Route: 048
     Dates: start: 202107

REACTIONS (3)
  - Malaise [Unknown]
  - Feeling abnormal [Unknown]
  - COVID-19 [Unknown]
